FAERS Safety Report 11285748 (Version 1)
Quarter: 2015Q3

REPORT INFORMATION
  Report Type: Spontaneous
  Country: PT (occurrence: PT)
  Receive Date: 20150721
  Receipt Date: 20150721
  Transmission Date: 20151125
  Serious: Yes (Death)
  Sender: FDA-Public Use
  Company Number: PT-ROCHE-1609395

PATIENT
  Age: 78 Year
  Sex: Female

DRUGS (2)
  1. MABTHERA [Suspect]
     Active Substance: RITUXIMAB
     Indication: NON-HODGKIN^S LYMPHOMA
     Route: 058
     Dates: start: 20150219
  2. ESOMEPRAZOL [Concomitant]
     Active Substance: ESOMEPRAZOLE
     Route: 048

REACTIONS (4)
  - Death [Fatal]
  - Interstitial lung disease [Fatal]
  - Infection [Fatal]
  - Adverse reaction [Fatal]

NARRATIVE: CASE EVENT DATE: 20150324
